FAERS Safety Report 5301428-8 (Version None)
Quarter: 2007Q2

REPORT INFORMATION
  Report Type: 
  Country: None (occurrence: None)
  Receive Date: 20070418
  Receipt Date: 20070411
  Transmission Date: 20071010
  Serious: Yes (Hospitalization)
  Sender: FDA-Public Use
  Company Number: JP-PFIZER INC-2007016477

PATIENT
  Age: 73 Year
  Sex: Female

DRUGS (3)
  1. CABASER [Suspect]
     Indication: PARKINSON'S DISEASE
     Route: 048
     Dates: start: 20030101, end: 20040601
  2. LEVODOPA [Suspect]
     Indication: PARKINSON'S DISEASE
     Dosage: DAILY DOSE:900MG
     Route: 048
     Dates: start: 20020401, end: 20040601
  3. AMARYL [Concomitant]
     Route: 048

REACTIONS (1)
  - HAEMOLYTIC ANAEMIA [None]
